FAERS Safety Report 21136212 (Version 2)
Quarter: 2023Q1

REPORT INFORMATION
  Report Type: Report from Study
  Country: US (occurrence: US)
  Receive Date: 20220727
  Receipt Date: 20230103
  Transmission Date: 20230417
  Serious: Yes (Death)
  Sender: FDA-Public Use
  Company Number: US-PFIZER INC-202200970812

PATIENT
  Age: 67 Year
  Sex: Male

DRUGS (3)
  1. CARBOPLATIN [Suspect]
     Active Substance: CARBOPLATIN
     Indication: Small cell lung cancer
     Dosage: AUC 4 MG/ML PER MINUTE, DAY 1
     Route: 042
  2. IRINOTECAN HYDROCHLORIDE [Suspect]
     Active Substance: IRINOTECAN HYDROCHLORIDE
     Indication: Small cell lung cancer
     Dosage: 60 MG/M2, CYCLIC 1, 8, AND 15, EVERY 28 DAYS FOR 4 CYCLES
     Route: 042
  3. BEVACIZUMAB [Suspect]
     Active Substance: BEVACIZUMAB
     Indication: Small cell lung cancer
     Dosage: 10 MG/KG, CYCLIC CYCLIC DAYS 1 AND 15 EVERY 28 DAYS FOR 4 CYCLES
     Route: 042

REACTIONS (2)
  - Gastrointestinal haemorrhage [Fatal]
  - Oesophagitis [Unknown]
